FAERS Safety Report 9444387 (Version 1)
Quarter: 2013Q3

REPORT INFORMATION
  Report Type: Spontaneous
  Country: US (occurrence: US)
  Receive Date: 20130807
  Receipt Date: 20130807
  Transmission Date: 20140515
  Serious: No
  Sender: FDA-Public Use
  Company Number: US-BAYER-2013-095406

PATIENT
  Age: 75 Year
  Sex: Female
  Weight: 91 kg

DRUGS (5)
  1. ALEVE CAPLET [Suspect]
     Indication: PAIN
     Dosage: 2 DF, PRN
     Route: 048
  2. METFORMIN [Concomitant]
  3. CALTRATE [CALCIUM CARBONATE] [Concomitant]
  4. VITAMIN D [Concomitant]
  5. LASIX [Concomitant]

REACTIONS (2)
  - Drug ineffective [None]
  - Extra dose administered [None]
